FAERS Safety Report 13398757 (Version 1)
Quarter: 2017Q2

REPORT INFORMATION
  Report Type: Spontaneous
  Country: FR (occurrence: FR)
  Receive Date: 20170403
  Receipt Date: 20170403
  Transmission Date: 20170830
  Serious: Yes (Other)
  Sender: FDA-Public Use
  Company Number: FR-ASTRAZENECA-2017SE33262

PATIENT
  Age: 75 Year
  Sex: Male

DRUGS (7)
  1. METFORMIN [Concomitant]
     Active Substance: METFORMIN HYDROCHLORIDE
  2. CORTANCYL [Concomitant]
     Active Substance: PREDNISONE
  3. INEXIUM [Suspect]
     Active Substance: ESOMEPRAZOLE
     Route: 048
     Dates: start: 201401, end: 20170303
  4. ZYVOXID [Concomitant]
     Active Substance: LINEZOLID
  5. DOLIPRANE [Concomitant]
     Active Substance: ACETAMINOPHEN
  6. DOXYCYCLINE. [Suspect]
     Active Substance: DOXYCYCLINE
     Indication: POLYMYALGIA RHEUMATICA
     Route: 065
     Dates: start: 20161122, end: 20170301
  7. NOVONORM [Concomitant]
     Active Substance: REPAGLINIDE

REACTIONS (4)
  - Plasmacytosis [Unknown]
  - Agranulocytosis [Recovered/Resolved]
  - Polymyalgia rheumatica [Unknown]
  - Bone marrow failure [Unknown]

NARRATIVE: CASE EVENT DATE: 20170226
